FAERS Safety Report 8326527-8 (Version None)
Quarter: 2012Q2

REPORT INFORMATION
  Report Type: 
  Country: None (occurrence: None)
  Receive Date: 20120501
  Receipt Date: 20120425
  Transmission Date: 20120825
  Serious: No
  Sender: FDA-Public Use
  Company Number: US-PFIZER INC-2012102901

PATIENT
  Sex: Female

DRUGS (1)
  1. DILANTIN [Suspect]
     Indication: GRAND MAL CONVULSION
     Dosage: 100 MG, 3X/DAY
     Route: 048
     Dates: start: 20120312, end: 20120424

REACTIONS (7)
  - BURNING SENSATION [None]
  - NAUSEA [None]
  - FLUSHING [None]
  - VOMITING [None]
  - RASH [None]
  - BODY TEMPERATURE INCREASED [None]
  - ERYTHEMA [None]
